FAERS Safety Report 15083998 (Version 1)
Quarter: 2018Q2

REPORT INFORMATION
  Report Type: Spontaneous
  Country: GB (occurrence: IE)
  Receive Date: 20180628
  Receipt Date: 20180628
  Transmission Date: 20180711
  Serious: Yes (Other)
  Sender: FDA-Public Use
  Company Number: IE-FRESENIUS KABI-FK201807341

PATIENT
  Age: 55 Year
  Sex: Female

DRUGS (9)
  1. CLOZARIL [Suspect]
     Active Substance: CLOZAPINE
     Indication: IMPULSIVE BEHAVIOUR
  2. GEMCITABINE [Suspect]
     Active Substance: GEMCITABINE\GEMCITABINE HYDROCHLORIDE
     Indication: PRODUCT USED FOR UNKNOWN INDICATION
     Dosage: UNKNOWN
     Route: 065
  3. CLOZARIL [Suspect]
     Active Substance: CLOZAPINE
     Indication: AFFECTIVE DISORDER
     Dosage: UNK
     Dates: start: 20140312, end: 20160910
  4. CISPLATIN (MANUFACTURER UNKNOWN) [Suspect]
     Active Substance: CISPLATIN
     Indication: PRODUCT USED FOR UNKNOWN INDICATION
     Dosage: UNKNOWN
     Route: 065
  5. CLOZARIL [Suspect]
     Active Substance: CLOZAPINE
     Indication: DEPRESSION
     Route: 065
     Dates: start: 20161026, end: 201805
  6. CLOZARIL [Suspect]
     Active Substance: CLOZAPINE
     Indication: PERSONALITY DISORDER
  7. CLOZARIL [Suspect]
     Active Substance: CLOZAPINE
     Indication: SUICIDAL BEHAVIOUR
  8. CLOZARIL [Suspect]
     Active Substance: CLOZAPINE
     Indication: AFFECT LABILITY
     Dosage: 350 MG, QD
     Dates: start: 20180603
  9. CLOZARIL [Suspect]
     Active Substance: CLOZAPINE
     Indication: SCHIZOPHRENIA

REACTIONS (7)
  - White blood cell count increased [Unknown]
  - Neutropenia [Recovered/Resolved]
  - Vulval cancer [Unknown]
  - Breast cancer [Unknown]
  - Thrombocytopenia [Recovered/Resolved]
  - White blood cell count decreased [Recovering/Resolving]
  - Neutrophil count increased [Unknown]

NARRATIVE: CASE EVENT DATE: 20160819
